FAERS Safety Report 6295860-6 (Version None)
Quarter: 2009Q3

REPORT INFORMATION
  Report Type: 
  Country: None (occurrence: None)
  Receive Date: 20090804
  Receipt Date: 20090721
  Transmission Date: 20100115
  Serious: Yes (Hospitalization)
  Sender: FDA-Public Use
  Company Number: RS-ROCHE-645137

PATIENT
  Sex: Female
  Weight: 66 kg

DRUGS (2)
  1. PEG-INTERFERON ALFA 2A (RO 25-8310) [Suspect]
     Dosage: DOSE REPORTED AS MCG.
     Route: 058
     Dates: start: 20090329
  2. RIBAVIRIN [Suspect]
     Route: 048
     Dates: start: 20090329

REACTIONS (3)
  - HELICOBACTER INFECTION [None]
  - LEUKOCYTURIA [None]
  - URINARY TRACT INFECTION [None]
